FAERS Safety Report 21121484 (Version 1)
Quarter: 2022Q3

REPORT INFORMATION
  Report Type: Report from Study
  Country: US (occurrence: US)
  Receive Date: 20220722
  Receipt Date: 20220722
  Transmission Date: 20221027
  Serious: Yes (Hospitalization, Other)
  Sender: FDA-Public Use
  Company Number: US-BAYER-2022A095351

PATIENT
  Sex: Male

DRUGS (2)
  1. NEXAVAR [Suspect]
     Active Substance: SORAFENIB
     Indication: Hepatocellular carcinoma
     Dosage: DAILY DOSE 200 MG (1 TABLET DAILY ON MONDAY AND THURSDAY)
     Route: 048
  2. NEXAVAR [Suspect]
     Active Substance: SORAFENIB
     Indication: Hepatocellular carcinoma
     Dosage: 200 MG, BID (ON TUESDAY, WEDNESDAY, FRIDAY, SATURDAY, AND SUNDAY)
     Route: 048

REACTIONS (5)
  - Full blood count abnormal [Unknown]
  - Asthenia [Unknown]
  - Diarrhoea [None]
  - Malaise [Not Recovered/Not Resolved]
  - Off label use [None]
